FAERS Safety Report 5399336-X (Version None)
Quarter: 2007Q3

REPORT INFORMATION
  Report Type: 
  Country: None (occurrence: None)
  Receive Date: 20070727
  Receipt Date: 20070717
  Transmission Date: 20080115
  Serious: Yes (Hospitalization, Disabling, Other)
  Sender: FDA-Public Use
  Company Number: US-ROCHE-482163

PATIENT
  Sex: Female

DRUGS (1)
  1. ACCUTANE [Suspect]
     Indication: ACNE
     Route: 048
     Dates: start: 19990107, end: 19990401

REACTIONS (15)
  - ANAEMIA [None]
  - CARDIAC FAILURE CONGESTIVE [None]
  - DEPRESSION [None]
  - INSOMNIA [None]
  - MENINGITIS [None]
  - MITRAL VALVE INCOMPETENCE [None]
  - PROTEINURIA [None]
  - RASH [None]
  - RECTAL FISSURE [None]
  - RECTAL HAEMORRHAGE [None]
  - RENAL DISORDER [None]
  - RHEUMATOID ARTHRITIS [None]
  - SUICIDAL IDEATION [None]
  - SYSTEMIC LUPUS ERYTHEMATOSUS [None]
  - THROMBOCYTOPENIA [None]
